FAERS Safety Report 7825266-7 (Version None)
Quarter: 2011Q4

REPORT INFORMATION
  Report Type: 
  Country: None (occurrence: None)
  Receive Date: 20111019
  Receipt Date: 20110928
  Transmission Date: 20120403
  Serious: Yes (Hospitalization, Other)
  Sender: FDA-Public Use
  Company Number: US-GLAXOSMITHKLINE-A0946671A

PATIENT
  Age: 56 Year
  Sex: Male
  Weight: 95.6 kg

DRUGS (2)
  1. LAPATINIB [Suspect]
     Indication: RECTAL CANCER
     Dosage: 1000MG PER DAY
     Route: 048
  2. ERBITUX [Suspect]
     Indication: RECTAL CANCER
     Dosage: 548MG WEEKLY
     Route: 042

REACTIONS (3)
  - BLOOD BILIRUBIN INCREASED [None]
  - JAUNDICE [None]
  - HYPERBILIRUBINAEMIA [None]
